FAERS Safety Report 17334166 (Version 1)
Quarter: 2020Q1

REPORT INFORMATION
  Report Type: Spontaneous
  Country: US (occurrence: US)
  Receive Date: 20200128
  Receipt Date: 20200128
  Transmission Date: 20200409
  Serious: No
  Sender: FDA-Public Use
  Company Number: US-GALDERMA-US19049553

PATIENT
  Age: 69 Year
  Sex: Female

DRUGS (13)
  1. PROACTIV MD DAILY OIL CONTROL SPF 30 [Suspect]
     Active Substance: AVOBENZONE\OCTISALATE\OCTOCRYLENE
     Indication: SKIN TEXTURE ABNORMAL
     Route: 061
     Dates: start: 20190530, end: 20190716
  2. NIFEDIPINE (HEART) [Concomitant]
     Indication: MYOCARDIAL INFARCTION
  3. PROACTIV MD DEEP CLEANSING FACE WASH [Concomitant]
     Active Substance: COSMETICS
     Indication: ACNE
  4. ISOSORBIDE (HEART) [Concomitant]
     Indication: MYOCARDIAL INFARCTION
  5. PROACTIV MD DAILY OIL CONTROL SPF 30 [Suspect]
     Active Substance: AVOBENZONE\OCTISALATE\OCTOCRYLENE
     Indication: ACNE
  6. PROACTIV MD DEEP CLEANSING FACE WASH [Concomitant]
     Active Substance: COSMETICS
     Indication: SKIN TEXTURE ABNORMAL
     Route: 061
     Dates: start: 20190530, end: 20190716
  7. LASIX (DIURETICS) [Concomitant]
     Indication: BLOOD PRESSURE INCREASED
  8. PROACTIV MD ADAPALENE ACNE TREATMENT [Suspect]
     Active Substance: ADAPALENE
     Indication: ACNE
  9. PROACTIV GREEN TEA MOISTURIZER [Concomitant]
     Active Substance: COSMETICS
     Indication: SKIN TEXTURE ABNORMAL
     Route: 061
     Dates: start: 20190530, end: 20190716
  10. PROACTIV MD ADAPALENE ACNE TREATMENT [Suspect]
     Active Substance: ADAPALENE
     Indication: SKIN TEXTURE ABNORMAL
     Dosage: 0.1%
     Route: 061
     Dates: start: 20190530, end: 20190716
  11. METOPROLOL (HEART) [Concomitant]
     Indication: MYOCARDIAL INFARCTION
  12. PROACTIV GREEN TEA MOISTURIZER [Concomitant]
     Active Substance: COSMETICS
     Indication: ACNE
  13. ATORVASTATIN (CHOLESTEROL) [Concomitant]
     Indication: BLOOD CHOLESTEROL

REACTIONS (2)
  - Pruritus [Recovered/Resolved]
  - Sensitive skin [Recovered/Resolved]

NARRATIVE: CASE EVENT DATE: 20190630
